FAERS Safety Report 6302701-7 (Version None)
Quarter: 2009Q3

REPORT INFORMATION
  Report Type: 
  Country: None (occurrence: None)
  Receive Date: 20090810
  Receipt Date: 20090730
  Transmission Date: 20100115
  Serious: Yes (Disabling)
  Sender: FDA-Public Use
  Company Number: PHHY2009IT31546

PATIENT
  Sex: Male

DRUGS (8)
  1. ZOMETA [Suspect]
     Indication: PROSTATE CANCER
     Dosage: UNK
     Dates: start: 20040713, end: 20060915
  2. FOSAVANCE [Suspect]
     Dosage: UNK
     Dates: start: 20061001
  3. DIURESIX [Concomitant]
  4. UNIPRIL [Concomitant]
  5. MEPRAL [Concomitant]
  6. TICLID [Concomitant]
  7. CASODEX [Concomitant]
  8. ZANEDIP [Concomitant]

REACTIONS (3)
  - BONE DISORDER [None]
  - OSTEONECROSIS [None]
  - TOOTH EXTRACTION [None]
